FAERS Safety Report 19907251 (Version 1)
Quarter: 2021Q3

REPORT INFORMATION
  Report Type: Spontaneous
  Country: UA (occurrence: UA)
  Receive Date: 20210930
  Receipt Date: 20210930
  Transmission Date: 20211014
  Serious: Yes (Other)
  Sender: FDA-Public Use
  Company Number: NVSC2021UA221140

PATIENT
  Age: 62 Year
  Sex: Male

DRUGS (1)
  1. SCAPHO [Suspect]
     Active Substance: SECUKINUMAB
     Indication: PSORIATIC ARTHROPATHY
     Dosage: 150 MG, QW FOLLOWED BY ONCE PER MONTH
     Route: 058
     Dates: start: 20210918, end: 202109

REACTIONS (3)
  - Drug ineffective [Unknown]
  - Paradoxical pain [Unknown]
  - Skin exfoliation [Unknown]
